FAERS Safety Report 17578396 (Version 1)
Quarter: 2020Q1

REPORT INFORMATION
  Report Type: Spontaneous
  Country: SE (occurrence: SE)
  Receive Date: 20200324
  Receipt Date: 20200324
  Transmission Date: 20200409
  Serious: Yes (Hospitalization)
  Sender: FDA-Public Use
  Company Number: SE-SA-2020SA072837

PATIENT
  Sex: Male

DRUGS (1)
  1. RENVELA [Suspect]
     Active Substance: SEVELAMER CARBONATE

REACTIONS (2)
  - Lower limb fracture [Unknown]
  - Wrong technique in product usage process [Unknown]
